FAERS Safety Report 10088492 (Version 1)
Quarter: 2014Q2

REPORT INFORMATION
  Report Type: Spontaneous
  Country: US (occurrence: US)
  Receive Date: 20140421
  Receipt Date: 20140421
  Transmission Date: 20141212
  Serious: No
  Sender: FDA-Public Use
  Company Number: US-BIOGENIDEC-2014BI031951

PATIENT
  Age: 61 Year
  Sex: Female

DRUGS (8)
  1. TECFIDERA [Suspect]
     Indication: MULTIPLE SCLEROSIS
     Route: 048
  2. BACLOFEN [Concomitant]
  3. BUSPIRONE HCL [Concomitant]
  4. CHANTIX [Concomitant]
  5. CYMBALTA [Concomitant]
  6. LYRICA [Concomitant]
  7. METHADONE HCL [Concomitant]
  8. PERCOCET [Concomitant]

REACTIONS (2)
  - Abasia [Unknown]
  - Mobility decreased [Unknown]
